FAERS Safety Report 5267330-5 (Version None)
Quarter: 2007Q1

REPORT INFORMATION
  Report Type: 
  Country: None (occurrence: None)
  Receive Date: 20070312
  Receipt Date: 20070301
  Transmission Date: 20070707
  Serious: Yes (Life-Threatening)
  Sender: FDA-Public Use
  Company Number: 07H-163-0312185-00

PATIENT
  Age: 67 Year
  Sex: Female
  Weight: 58.514 kg

DRUGS (5)
  1. DOPAMINE HCL [Suspect]
     Indication: HYPOTENSION
     Dosage: INTRAVENOUS
     Route: 042
     Dates: start: 20070228, end: 20070228
  2. LEVOPHED [Suspect]
     Indication: HYPOTENSION
     Dosage: INTRAVENOUS
     Route: 042
     Dates: start: 20070228, end: 20070228
  3. DIOVAN (PROPOFOL) [Concomitant]
  4. SODIUM CLORIDE INJECTION (SODIUM CHLORIDE INJECTION) (SODIUM CHLORIDE) [Suspect]
     Indication: HYPOTENSION
     Dosage: INTRAVENOUS
     Route: 042
     Dates: start: 20070228, end: 20070228
  5. PROPOFOL [Suspect]
     Indication: SEDATION
     Dosage: INTRAVENOUS
     Route: 042
     Dates: start: 20070228, end: 20070228

REACTIONS (3)
  - AIR EMBOLISM [None]
  - HYPOTENSION [None]
  - HYPOXIA [None]
